FAERS Safety Report 13574720 (Version 1)
Quarter: 2017Q2

REPORT INFORMATION
  Report Type: Spontaneous
  Country: GB (occurrence: GB)
  Receive Date: 20170523
  Receipt Date: 20170523
  Transmission Date: 20170830
  Serious: Yes (Disabling, Other)
  Sender: FDA-Public Use
  Company Number: GB-MYLANLABS-2017M1030404

PATIENT

DRUGS (12)
  1. DIAZEPAM. [Concomitant]
     Active Substance: DIAZEPAM
     Dosage: TAKE ONE AS DIRECTED
     Dates: start: 20170215
  2. DOCUSATE [Concomitant]
     Active Substance: DOCUSATE
     Dosage: TAKE 1-2 AT NIGHT
     Dates: start: 20170215
  3. LONGTEC [Concomitant]
     Active Substance: OXYCODONE HYDROCHLORIDE
     Dosage: 40 MG, BID
     Dates: start: 20170215, end: 20170303
  4. ORAMORPH [Concomitant]
     Active Substance: MORPHINE SULFATE
     Indication: BREAKTHROUGH PAIN
     Dosage: 5- 10ML EVERY 4 HOURS
     Dates: start: 20170215
  5. DULOXETINE. [Concomitant]
     Active Substance: DULOXETINE
     Dosage: 60 MG, QD
     Dates: start: 20170215, end: 20170509
  6. FOLIC ACID. [Concomitant]
     Active Substance: FOLIC ACID
     Dosage: 5 MG, QD
     Dates: start: 20170227
  7. FERROUS FUMARATE [Concomitant]
     Active Substance: FERROUS FUMARATE
     Dosage: 210 MG, TID
     Dates: start: 20170227
  8. GABAPENTIN. [Suspect]
     Active Substance: GABAPENTIN
     Dosage: 1- 3 DAILY
     Dates: start: 20170215
  9. LACTULOSE. [Concomitant]
     Active Substance: LACTULOSE
     Dosage: 3.1-3.7G/5ML ORAL SOLUTION
     Dates: start: 20170509
  10. GABAPENTIN. [Suspect]
     Active Substance: GABAPENTIN
     Dosage: 100 MG, UNK
     Route: 048
  11. MORPHINE [Concomitant]
     Active Substance: MORPHINE
     Dosage: 30 MG, BID
     Dates: start: 20170328
  12. PREMARIN [Concomitant]
     Active Substance: ESTROGENS, CONJUGATED
     Dosage: 1.25 MG, QD
     Dates: start: 20170413

REACTIONS (1)
  - Loose tooth [Recovering/Resolving]

NARRATIVE: CASE EVENT DATE: 20170414
